FAERS Safety Report 8765478 (Version 1)
Quarter: 2012Q4

REPORT INFORMATION
  Report Type: 
  Country: BR (occurrence: BR)
  Receive Date: 20120831
  Receipt Date: 20120831
  Transmission Date: 20130627
  Serious: Yes (Other)
  Sender: FDA-Public Use
  Company Number: BR-PFIZER INC-2012211024

PATIENT
  Age: 57 Year
  Sex: Female
  Weight: 68 kg

DRUGS (10)
  1. LYRICA [Suspect]
     Indication: CENTRAL PAIN SYNDROME
     Dosage: 75 mg, 1x/day (1capsule/ morning)
     Route: 048
  2. LYRICA [Suspect]
     Dosage: 75 mg, 2x/day
     Route: 048
  3. LYRICA [Suspect]
     Dosage: 225 mg, 1x/day (75mg/morning and 150mg/night)
     Route: 048
     Dates: start: 20120820, end: 20120824
  4. CIPRAMIL [Concomitant]
     Indication: ANTIDEPRESSANT THERAPY
     Dosage: UNK
  5. HIDANTAL [Concomitant]
     Indication: CONVULSION
     Dosage: UNK
  6. RYTMONORM [Concomitant]
     Indication: ARRHYTHMIA
     Dosage: UNK
  7. RIVOTRIL [Concomitant]
     Indication: SLEEP DISORDER
     Dosage: UNK
  8. SELOZOK [Concomitant]
     Indication: HEART RATE IRREGULAR
     Dosage: UNK
  9. TOLVON [Concomitant]
     Indication: SLEEP DISORDER
     Dosage: UNK
  10. TOLVON [Concomitant]
     Indication: ANTIDEPRESSANT THERAPY

REACTIONS (5)
  - Motor dysfunction [Recovering/Resolving]
  - Exophthalmos [Recovering/Resolving]
  - Dysarthria [Recovered/Resolved with Sequelae]
  - Drug ineffective [Unknown]
  - Somnolence [Recovering/Resolving]
